FAERS Safety Report 13347910 (Version 1)
Quarter: 2017Q1

REPORT INFORMATION
  Report Type: Other
  Country: GB (occurrence: CA)
  Receive Date: 20170318
  Receipt Date: 20170318
  Transmission Date: 20170428
  Serious: Yes (Other)
  Sender: FDA-Public Use
  Company Number: CA-INTERNATIONAL MEDICATION SYSTEMS, LIMITED-1064369

PATIENT
  Age: 76 Year
  Sex: Female

DRUGS (8)
  1. FENTANYL. [Suspect]
     Active Substance: FENTANYL
     Route: 024
  2. BUPIVACAINE 0.5 % (5MG/ML) [Suspect]
     Active Substance: BUPIVACAINE
     Route: 024
  3. SODIUM CHLORIDE. [Concomitant]
     Active Substance: SODIUM CHLORIDE
  4. ROPIVACAINE HCL [Concomitant]
     Active Substance: ROPIVACAINE HYDROCHLORIDE
     Route: 052
  5. EPINEPHRINE. [Concomitant]
     Active Substance: EPINEPHRINE
     Route: 052
  6. MORPHINE [Suspect]
     Active Substance: MORPHINE
     Route: 052
  7. KETOROLAC [Concomitant]
     Active Substance: KETOROLAC\KETOROLAC TROMETHAMINE
     Route: 052
  8. FENTANYL. [Suspect]
     Active Substance: FENTANYL
     Route: 042

REACTIONS (5)
  - Bradycardia [Recovered/Resolved]
  - Emotional distress [Recovered/Resolved]
  - Sphincter of Oddi dysfunction [Recovering/Resolving]
  - Hypertension [Recovering/Resolving]
  - Dyspepsia [Recovering/Resolving]
